FAERS Safety Report 8073106-6 (Version None)
Quarter: 2012Q1

REPORT INFORMATION
  Report Type: 
  Country: None (occurrence: None)
  Receive Date: 20120126
  Receipt Date: 20120123
  Transmission Date: 20120608
  Serious: No
  Sender: FDA-Public Use
  Company Number: US-TEVA-319202USA

PATIENT
  Sex: Female
  Weight: 67.192 kg

DRUGS (2)
  1. MULTI-VITAMIN [Concomitant]
     Indication: MEDICAL DIET
  2. PLAN B ONE-STEP [Suspect]
     Indication: MENSTRUATION IRREGULAR
     Dosage: 1.5 MILLIGRAM;
     Route: 048
     Dates: start: 20120120, end: 20120120

REACTIONS (1)
  - MICTURITION DISORDER [None]
